FAERS Safety Report 16260473 (Version 1)
Quarter: 2019Q2

REPORT INFORMATION
  Report Type: Spontaneous
  Country: US (occurrence: US)
  Receive Date: 20190430
  Receipt Date: 20190430
  Transmission Date: 20190711
  Serious: Yes (Life-Threatening, Hospitalization)
  Sender: FDA-Public Use
  Company Number: None

PATIENT
  Age: 62 Year
  Sex: Female
  Weight: 199.7 kg

DRUGS (1)
  1. ENOXAPARIN [Suspect]
     Active Substance: ENOXAPARIN
     Indication: ANTICOAGULANT THERAPY
     Dosage: ?          OTHER FREQUENCY:EVERY 12 HOURS;?
     Route: 058
     Dates: start: 20190416, end: 20190417

REACTIONS (6)
  - Angioedema [None]
  - Dyspnoea [None]
  - Chest pain [None]
  - Oedema peripheral [None]
  - Swollen tongue [None]
  - Swelling face [None]

NARRATIVE: CASE EVENT DATE: 20190417
